FAERS Safety Report 18925221 (Version 2)
Quarter: 2021Q1

REPORT INFORMATION
  Report Type: Spontaneous
  Country: US (occurrence: US)
  Receive Date: 20210222
  Receipt Date: 20210311
  Transmission Date: 20210420
  Serious: No
  Sender: FDA-Public Use
  Company Number: US-MILLICENT HOLDINGS LTD.-MILL20210032

PATIENT
  Age: 59 Year
  Sex: Female
  Weight: 49.5 kg

DRUGS (2)
  1. INTRAROSA [Suspect]
     Active Substance: PRASTERONE
     Indication: VULVOVAGINAL DRYNESS
     Dosage: ONE INSERT AT BEDTIME
     Route: 067
     Dates: start: 2018
  2. COMBIPATCH [Suspect]
     Active Substance: ESTRADIOL\NORETHINDRONE ACETATE
     Indication: PRODUCT USED FOR UNKNOWN INDICATION
     Dosage: 0.05 ?  0.14
     Route: 065
     Dates: start: 2013

REACTIONS (2)
  - Fungal skin infection [Unknown]
  - Off label use [Unknown]

NARRATIVE: CASE EVENT DATE: 2018
